FAERS Safety Report 8552334-7 (Version None)
Quarter: 2012Q3

REPORT INFORMATION
  Report Type: 
  Country: None (occurrence: None)
  Receive Date: 20120718
  Receipt Date: 20120703
  Transmission Date: 20120928
  Serious: Yes (Other)
  Sender: FDA-Public Use
  Company Number: 2012RR-57484

PATIENT

DRUGS (1)
  1. AMOXICILLIN [Suspect]
     Dosage: 500 MG, ORAL
     Route: 048

REACTIONS (1)
  - DRUG ERUPTION [None]
